FAERS Safety Report 25676134 (Version 1)
Quarter: 2025Q3

REPORT INFORMATION
  Report Type: Report from Study
  Country: US (occurrence: US)
  Receive Date: 20250813
  Receipt Date: 20250813
  Transmission Date: 20251021
  Serious: No
  Sender: SUNOVION
  Company Number: US-SUMITOMO PHARMA SWITZERLAND GMBH-2025SPA010087

PATIENT
  Age: 75 Year
  Sex: Male

DRUGS (2)
  1. ORGOVYX [Suspect]
     Active Substance: RELUGOLIX
     Indication: Prostate cancer
     Route: 048
  2. ORGOVYX [Suspect]
     Active Substance: RELUGOLIX
     Route: 048

REACTIONS (11)
  - Retching [Unknown]
  - Dyspepsia [Unknown]
  - Pollakiuria [Recovering/Resolving]
  - Visual impairment [Unknown]
  - Dizziness [Unknown]
  - Abdominal pain [Unknown]
  - Nausea [Unknown]
  - Blood glucose increased [Unknown]
  - Hot flush [Unknown]
  - Asthenia [Unknown]
  - Fatigue [Unknown]
